FAERS Safety Report 6888559 (Version 3)
Quarter: 2013Q3

REPORT INFORMATION
  Report Type: Spontaneous
  Country: DK (occurrence: DK)
  Receive Date: 20090122
  Receipt Date: 20130920
  Transmission Date: 20140515
  Serious: Yes (Life-Threatening, Hospitalization, Disabling, Other)
  Sender: FDA-Public Use
  Company Number: DK-JNJFOC-20090103312

PATIENT
  Age: 27 Year
  Sex: Female
  Weight: 60 kg

DRUGS (5)
  1. REMICADE [Suspect]
     Indication: CROHN^S DISEASE
     Route: 042
     Dates: start: 20030922
  2. REMICADE [Suspect]
     Indication: CROHN^S DISEASE
     Dosage: DOSE NO. 300 (UNSPECIFIED UNITS)
     Route: 042
     Dates: start: 200605, end: 20081210
  3. GESTODENE [Suspect]
     Indication: PRODUCT USED FOR UNKNOWN INDICATION
     Route: 065
  4. ETHINYLESTRADIOL [Suspect]
     Indication: PRODUCT USED FOR UNKNOWN INDICATION
     Route: 065
  5. HARMONET [Concomitant]
     Indication: CONTRACEPTION
     Dosage: CUMMULATIVE DOSE TO FIRST REACTION IS 436.0 (UNITS UNSPECIFIED)
     Route: 065
     Dates: start: 20071031, end: 200903

REACTIONS (6)
  - Ventricular fibrillation [Recovered/Resolved]
  - Cardiac arrest [Recovered/Resolved]
  - Cardiac pacemaker insertion [Unknown]
  - Memory impairment [Not Recovered/Not Resolved]
  - Fatigue [Not Recovered/Not Resolved]
  - Personality change [Not Recovered/Not Resolved]
